FAERS Safety Report 8517547-9 (Version None)
Quarter: 2012Q3

REPORT INFORMATION
  Report Type: 
  Country: None (occurrence: None)
  Receive Date: 20120718
  Receipt Date: 20120709
  Transmission Date: 20120928
  Serious: Yes (Hospitalization)
  Sender: FDA-Public Use
  Company Number: VE-ASTRAZENECA-2012SE47979

PATIENT
  Age: 29 Day
  Sex: Male
  Weight: 1.8 kg

DRUGS (2)
  1. VANCOMYCIN [Concomitant]
     Indication: SEPSIS NEONATAL
  2. MEROPENEM [Suspect]
     Indication: SEPSIS NEONATAL
     Route: 042
     Dates: start: 20120614, end: 20120628

REACTIONS (1)
  - SOFT TISSUE NECROSIS [None]
